FAERS Safety Report 7174802-5 (Version None)
Quarter: 2010Q4

REPORT INFORMATION
  Report Type: 
  Country: None (occurrence: None)
  Receive Date: 20101219
  Receipt Date: 20100412
  Transmission Date: 20110411
  Serious: Yes (Other)
  Sender: FDA-Public Use
  Company Number: US-AMGEN-KDL403650

PATIENT

DRUGS (2)
  1. ENBREL [Suspect]
     Indication: PSORIASIS
     Dosage: UNK UNK, UNK
     Dates: start: 20070101
  2. METHOTREXATE [Concomitant]
     Dosage: 25 MG, QWK
     Route: 048

REACTIONS (2)
  - DEPRESSION [None]
  - PSORIASIS [None]
